FAERS Safety Report 8215593-6 (Version None)
Quarter: 2012Q1

REPORT INFORMATION
  Report Type: 
  Country: None (occurrence: None)
  Receive Date: 20120316
  Receipt Date: 20120307
  Transmission Date: 20120608
  Serious: Yes (Other)
  Sender: FDA-Public Use
  Company Number: CA-JNJFOC-20120304355

PATIENT
  Sex: Female
  Weight: 117 kg

DRUGS (2)
  1. METHOTREXATE [Concomitant]
     Dosage: 4 TABLETS WEEKLY
     Route: 048
  2. REMICADE [Suspect]
     Indication: RHEUMATOID ARTHRITIS
     Route: 042

REACTIONS (1)
  - EPISTAXIS [None]
